FAERS Safety Report 13637629 (Version 3)
Quarter: 2017Q2

REPORT INFORMATION
  Report Type: Spontaneous
  Country: US (occurrence: US)
  Receive Date: 20170609
  Receipt Date: 20170628
  Transmission Date: 20170830
  Serious: Yes (Other)
  Sender: FDA-Public Use
  Company Number: US-TEVA-774777USA

PATIENT
  Age: 50 Year
  Sex: Female
  Weight: 117.59 kg

DRUGS (12)
  1. LISINOPRIL. [Concomitant]
     Active Substance: LISINOPRIL
  2. IRON [Concomitant]
     Active Substance: IRON
  3. GENERIC KEPPRA [Concomitant]
     Active Substance: LEVETIRACETAM
  4. METFORMIN [Concomitant]
     Active Substance: METFORMIN HYDROCHLORIDE
  5. FOLIC ACID. [Concomitant]
     Active Substance: FOLIC ACID
  6. METOPROLOL. [Concomitant]
     Active Substance: METOPROLOL
  7. VITAMIN B3 [Concomitant]
     Active Substance: NIACIN
  8. ALLOPURINOL. [Concomitant]
     Active Substance: ALLOPURINOL
  9. SYNRIBO [Suspect]
     Active Substance: OMACETAXINE MEPESUCCINATE
     Indication: CHRONIC MYELOID LEUKAEMIA
     Dosage: HOME ADMINISTRATION
     Route: 065
     Dates: start: 201705
  10. LEVOTHYROXINE. [Concomitant]
     Active Substance: LEVOTHYROXINE
  11. VITAMIN B12 [Concomitant]
     Active Substance: CYANOCOBALAMIN
  12. BIOTIN [Concomitant]
     Active Substance: BIOTIN

REACTIONS (15)
  - White blood cell count decreased [Not Recovered/Not Resolved]
  - Contusion [Unknown]
  - Skin exfoliation [Unknown]
  - Platelet count decreased [Not Recovered/Not Resolved]
  - Abdominal pain upper [Not Recovered/Not Resolved]
  - Vaginal haemorrhage [Not Recovered/Not Resolved]
  - Decreased appetite [Unknown]
  - Blister [Unknown]
  - Headache [Recovered/Resolved]
  - Oral pain [Recovered/Resolved]
  - Hot flush [Unknown]
  - Dizziness [Not Recovered/Not Resolved]
  - Stress [Unknown]
  - Asthenia [Not Recovered/Not Resolved]
  - Memory impairment [Unknown]

NARRATIVE: CASE EVENT DATE: 20170512
